FAERS Safety Report 8196357-9 (Version None)
Quarter: 2012Q1

REPORT INFORMATION
  Report Type: 
  Country: None (occurrence: None)
  Receive Date: 20120309
  Receipt Date: 20120301
  Transmission Date: 20120608
  Serious: No
  Sender: FDA-Public Use
  Company Number: US-PFIZER INC-2012056534

PATIENT
  Sex: Male

DRUGS (1)
  1. CHANTIX [Suspect]
     Dosage: UNK

REACTIONS (4)
  - IRRITABILITY [None]
  - TOBACCO WITHDRAWAL SYMPTOMS [None]
  - HEARING IMPAIRED [None]
  - DRUG INEFFECTIVE [None]
